FAERS Safety Report 16937707 (Version 1)
Quarter: 2019Q4

REPORT INFORMATION
  Report Type: Spontaneous
  Country: GB (occurrence: GB)
  Receive Date: 20191018
  Receipt Date: 20191018
  Transmission Date: 20200122
  Serious: Yes (Other)
  Sender: FDA-Public Use
  Company Number: GB-MYLANLABS-2019M1097943

PATIENT
  Age: 51 Year
  Sex: Female
  Weight: 93.88 kg

DRUGS (2)
  1. CLENIL MODULITE [Concomitant]
     Active Substance: BECLOMETHASONE DIPROPIONATE
  2. VENLAFAXINE [Suspect]
     Active Substance: VENLAFAXINE HYDROCHLORIDE
     Indication: DEPRESSION
     Dosage: 112.5 MILLIGRAM
     Route: 048
     Dates: start: 20180301

REACTIONS (2)
  - Dermatitis allergic [Not Recovered/Not Resolved]
  - Skin lesion [Unknown]

NARRATIVE: CASE EVENT DATE: 20190809
